FAERS Safety Report 13982649 (Version 3)
Quarter: 2018Q1

REPORT INFORMATION
  Report Type: Spontaneous
  Country: JP (occurrence: JP)
  Receive Date: 20170918
  Receipt Date: 20180131
  Transmission Date: 20180508
  Serious: Yes (Hospitalization, Other)
  Sender: FDA-Public Use
  Company Number: JP-BIOGEN-2017BI00456471

PATIENT
  Sex: Female
  Weight: 61 kg

DRUGS (6)
  1. LIORESAL [Concomitant]
     Active Substance: BACLOFEN
     Route: 048
  2. TECFIDERA [Suspect]
     Active Substance: DIMETHYL FUMARATE
     Indication: MULTIPLE SCLEROSIS
     Route: 048
     Dates: start: 20170726, end: 20170829
  3. TECFIDERA [Suspect]
     Active Substance: DIMETHYL FUMARATE
     Route: 048
     Dates: start: 20170830
  4. TECFIDERA [Suspect]
     Active Substance: DIMETHYL FUMARATE
     Route: 048
     Dates: start: 20170928, end: 20171020
  5. TECFIDERA [Suspect]
     Active Substance: DIMETHYL FUMARATE
     Route: 048
     Dates: start: 20170906
  6. TERNELIN [Concomitant]
     Active Substance: TIZANIDINE
     Route: 048

REACTIONS (1)
  - Uterine cancer [Not Recovered/Not Resolved]
